FAERS Safety Report 22230218 (Version 1)
Quarter: 2023Q2

REPORT INFORMATION
  Report Type: Spontaneous
  Country: CA (occurrence: CA)
  Receive Date: 20230419
  Receipt Date: 20230419
  Transmission Date: 20230721
  Serious: Yes (Other)
  Sender: FDA-Public Use
  Company Number: CA-PFIZER INC-202300161993

PATIENT
  Age: 26 Year
  Sex: Female
  Weight: 51 kg

DRUGS (14)
  1. METHOTREXATE SODIUM [Suspect]
     Active Substance: METHOTREXATE SODIUM
     Indication: Granulomatosis with polyangiitis
     Dosage: 1 DF
  2. PREDNISONE [Concomitant]
     Active Substance: PREDNISONE
     Dosage: 15 MG
  3. ALENDRONATE [Concomitant]
     Active Substance: ALENDRONATE SODIUM
     Dosage: 1 DF
  4. CALCIUM [Concomitant]
     Active Substance: CALCIUM
     Dosage: 1 DF
  5. CHOLECALCIFEROL [Concomitant]
     Active Substance: CHOLECALCIFEROL
     Dosage: 1 DF
  6. ATORVASTATIN [Concomitant]
     Active Substance: ATORVASTATIN
     Dosage: 1 DF
  7. SULFAMETHOXAZOLE AND TRIMETHOPRIM [Concomitant]
     Active Substance: SULFAMETHOXAZOLE\TRIMETHOPRIM
     Dosage: 1 DF
  8. PANTOPRAZOLE [Concomitant]
     Active Substance: PANTOPRAZOLE
     Dosage: 1 DF
  9. RENVELA [Concomitant]
     Active Substance: SEVELAMER CARBONATE
     Dosage: 1 DF
  10. SYNTHROID [Concomitant]
     Active Substance: LEVOTHYROXINE SODIUM
     Dosage: 1 DF
  11. METFORMIN [Concomitant]
     Active Substance: METFORMIN HYDROCHLORIDE
     Dosage: 1 DF
  12. ESCITALOPRAM [Concomitant]
     Active Substance: ESCITALOPRAM OXALATE
     Dosage: 1 DF
  13. PERINDOPRIL ARGININE [Concomitant]
     Active Substance: PERINDOPRIL ARGININE
     Dosage: 1 DF
  14. IRON [Concomitant]
     Active Substance: IRON
     Dosage: 1 DF

REACTIONS (13)
  - Arthralgia [Unknown]
  - Fatigue [Unknown]
  - Dyspnoea exertional [Unknown]
  - Loss of personal independence in daily activities [Unknown]
  - Sinus disorder [Recovered/Resolved]
  - Renal disorder [Not Recovered/Not Resolved]
  - Off label use [Unknown]
  - Drug intolerance [Unknown]
  - Nausea [Unknown]
  - Palpitations [Unknown]
  - Dizziness [Unknown]
  - Rash [Unknown]
  - Ecchymosis [Unknown]
